FAERS Safety Report 7909512-7 (Version None)
Quarter: 2011Q4

REPORT INFORMATION
  Report Type: 
  Country: None (occurrence: None)
  Receive Date: 20111111
  Receipt Date: 20111103
  Transmission Date: 20120403
  Serious: Yes (Hospitalization)
  Sender: FDA-Public Use
  Company Number: US-US-EMD SERONO, INC.-7093696

PATIENT
  Sex: Female

DRUGS (1)
  1. REBIF [Suspect]
     Indication: MULTIPLE SCLEROSIS
     Route: 058
     Dates: start: 20090505

REACTIONS (8)
  - LIVER DISORDER [None]
  - VOMITING [None]
  - RENAL DISORDER [None]
  - CARDIAC DISORDER [None]
  - GASTROINTESTINAL INFECTION [None]
  - DEHYDRATION [None]
  - NAUSEA [None]
  - MULTIPLE SCLEROSIS RELAPSE [None]
